FAERS Safety Report 9225746 (Version 3)
Quarter: 2013Q3

REPORT INFORMATION
  Report Type: Report from Study
  Country: US (occurrence: US)
  Receive Date: 20130411
  Receipt Date: 20130705
  Transmission Date: 20140515
  Serious: Yes (Hospitalization)
  Sender: FDA-Public Use
  Company Number: US-GLAXOSMITHKLINE-B0882596A

PATIENT
  Age: 41 Year
  Sex: Male
  Weight: 134.5 kg

DRUGS (13)
  1. LAMICTAL [Suspect]
     Indication: NEUROPATHY PERIPHERAL
     Dosage: 100MG TWICE PER DAY
     Route: 048
     Dates: start: 20120712, end: 20120817
  2. CLONAZEPAM [Concomitant]
     Indication: ANXIETY
     Route: 048
     Dates: start: 20061012
  3. GABAPENTIN [Concomitant]
     Indication: NEUROPATHY PERIPHERAL
     Route: 048
     Dates: start: 20111026
  4. CYMBALTA [Concomitant]
     Indication: DEPRESSION
     Route: 048
     Dates: start: 20060608
  5. BUPROPION [Concomitant]
     Indication: DEPRESSION
     Route: 048
     Dates: start: 20091217
  6. OXYCONTIN [Concomitant]
     Indication: PAIN
     Route: 048
     Dates: start: 20110504
  7. LORAZEPAM [Concomitant]
     Indication: ANXIETY
     Route: 048
     Dates: start: 20061012
  8. MARAVIROC [Concomitant]
     Indication: HIV INFECTION
     Dosage: 150MG TWICE PER DAY
     Route: 048
     Dates: start: 20120105
  9. OXYCODONE [Concomitant]
     Indication: PAIN
     Dosage: 5MG AS REQUIRED
     Route: 048
     Dates: start: 20110504
  10. ATAZANAVIR [Concomitant]
     Dosage: 300MG PER DAY
     Route: 048
     Dates: start: 20090217
  11. RITONAVIR [Concomitant]
     Dosage: 100MG PER DAY
     Route: 048
     Dates: start: 20090217
  12. TRUVADA [Concomitant]
     Dosage: 1TAB PER DAY
     Route: 048
     Dates: start: 20080716
  13. ELAVIL [Concomitant]
     Dates: end: 20120817

REACTIONS (2)
  - Mental status changes [Recovered/Resolved]
  - Pneumonia [Recovered/Resolved]
